FAERS Safety Report 4749767-3 (Version None)
Quarter: 2005Q3

REPORT INFORMATION
  Report Type: 
  Country: None (occurrence: None)
  Receive Date: 20050822
  Receipt Date: 20050610
  Transmission Date: 20060218
  Serious: Yes (Other)
  Sender: FDA-Public Use
  Company Number: US-BRISTOL-MYERS SQUIBB COMPANY-13000310

PATIENT
  Age: 28 Year
  Sex: Male
  Weight: 121 kg

DRUGS (6)
  1. ABILIFY [Suspect]
     Indication: AUTISM SPECTRUM DISORDER
     Route: 048
     Dates: start: 20041201
  2. CLONIDINE [Concomitant]
  3. TOPAMAX [Concomitant]
  4. CORRECTOL [Concomitant]
  5. ZANTAC [Concomitant]
  6. CLARITIN [Concomitant]

REACTIONS (5)
  - BLOOD CHOLESTEROL INCREASED [None]
  - BLOOD SODIUM DECREASED [None]
  - BLOOD TRIGLYCERIDES INCREASED [None]
  - DIABETES MELLITUS NON-INSULIN-DEPENDENT [None]
  - HIGH DENSITY LIPOPROTEIN DECREASED [None]
